FAERS Safety Report 16590578 (Version 1)
Quarter: 2019Q3

REPORT INFORMATION
  Report Type: Spontaneous
  Country: US (occurrence: US)
  Receive Date: 20190717
  Receipt Date: 20190717
  Transmission Date: 20191004
  Serious: Yes (Other)
  Sender: FDA-Public Use
  Company Number: None

PATIENT
  Age: 59 Year
  Sex: Female
  Weight: 53.55 kg

DRUGS (7)
  1. MESALAMINE SUPPOSITORIES [Suspect]
     Active Substance: MESALAMINE
     Indication: PROCTITIS
     Dosage: ?          QUANTITY:1 SUPPOSITORY(IES);?
     Route: 054
  2. XANAX [Concomitant]
     Active Substance: ALPRAZOLAM
  3. CALTRATE [Concomitant]
     Active Substance: CALCIUM CARBONATE
  4. CENTRUM SILVER [Concomitant]
     Active Substance: MINERALS\VITAMINS
  5. VIT D [Concomitant]
     Active Substance: VITAMIN D NOS
  6. MESALAMINE SUPPOSITORIES [Suspect]
     Active Substance: MESALAMINE
     Indication: COLITIS ULCERATIVE
     Dosage: ?          QUANTITY:1 SUPPOSITORY(IES);?
     Route: 054
  7. FLORAJEN PROBMIOTIC [Concomitant]

REACTIONS (3)
  - Product substitution issue [None]
  - Product physical issue [None]
  - Product use issue [None]

NARRATIVE: CASE EVENT DATE: 20190712
